FAERS Safety Report 4927309-7 (Version None)
Quarter: 2006Q1

REPORT INFORMATION
  Report Type: 
  Country: None (occurrence: None)
  Receive Date: 20060228
  Receipt Date: 20050628
  Transmission Date: 20060701
  Serious: No
  Sender: FDA-Public Use
  Company Number: US-GLAXOSMITHKLINE-A0564510A

PATIENT
  Age: 30 Year
  Sex: Female

DRUGS (12)
  1. IMITREX [Suspect]
     Indication: MIGRAINE
     Dosage: 6MG VARIABLE DOSE
     Route: 058
     Dates: start: 20020101
  2. TRAZODONE [Concomitant]
  3. VICODIN [Concomitant]
  4. ZANAFLEX [Concomitant]
  5. LAMICTAL [Concomitant]
  6. PROZAC [Concomitant]
  7. MORPHINE [Concomitant]
  8. ACCOLATE [Concomitant]
  9. SEREVENT [Concomitant]
     Route: 055
  10. IMITREX [Concomitant]
  11. IMITREX [Concomitant]
     Route: 048
  12. ALBUTEROL [Concomitant]

REACTIONS (5)
  - ERYTHEMA [None]
  - OEDEMA PERIPHERAL [None]
  - PAIN IN EXTREMITY [None]
  - PHARMACEUTICAL PRODUCT COMPLAINT [None]
  - PRURITUS [None]
